FAERS Safety Report 4283605-0 (Version None)
Quarter: 2004Q1

REPORT INFORMATION
  Report Type: 
  Country: None (occurrence: None)
  Receive Date: 20040121
  Receipt Date: 20030905
  Transmission Date: 20041129
  Serious: Yes (Other)
  Sender: FDA-Public Use
  Company Number: A03200302062

PATIENT
  Age: 80 Year
  Sex: Female
  Weight: 77.1115 kg

DRUGS (5)
  1. PLAVIX [Suspect]
     Indication: TRANSIENT ISCHAEMIC ATTACK
     Dosage: 75 MG QD - ORAL
     Route: 048
     Dates: start: 20030901, end: 20030904
  2. ALPRAZOLAM [Concomitant]
  3. VALSARTAN [Concomitant]
  4. VERAPAMIL HYDROCHLORIDE [Concomitant]
  5. GABAPENTIN [Concomitant]

REACTIONS (3)
  - PRURITUS [None]
  - SWELLING FACE [None]
  - URTICARIA [None]
